FAERS Safety Report 7792776-0 (Version None)
Quarter: 2011Q4

REPORT INFORMATION
  Report Type: 
  Country: None (occurrence: None)
  Receive Date: 20111003
  Receipt Date: 20110927
  Transmission Date: 20120403
  Serious: Yes (Hospitalization)
  Sender: FDA-Public Use
  Company Number: IE-AMGEN-IRLSP2011035990

PATIENT
  Sex: Female

DRUGS (10)
  1. ATECOR [Concomitant]
  2. GERAX [Concomitant]
  3. MYCOSTATIN [Concomitant]
  4. CIPROFLOXACIN [Concomitant]
  5. ANTINEOPLASTIC AGENTS [Concomitant]
  6. CELLUVISC                          /00007002/ [Concomitant]
  7. BY VERTIN [Concomitant]
  8. NEULASTA [Suspect]
     Indication: CHEMOTHERAPY
     Dosage: 6 MG, 3 TIMES/WK
     Route: 058
     Dates: start: 20110624
  9. MEGACE [Concomitant]
  10. VENTOLIN [Concomitant]

REACTIONS (1)
  - PNEUMONIA [None]
